FAERS Safety Report 5991304-X (Version None)
Quarter: 2008Q4

REPORT INFORMATION
  Report Type: 
  Country: None (occurrence: None)
  Receive Date: 20081211
  Receipt Date: 20080425
  Transmission Date: 20090506
  Serious: No
  Sender: FDA-Public Use
  Company Number: US-AMGEN-KDL276593

PATIENT
  Sex: Female

DRUGS (4)
  1. ENBREL [Suspect]
     Indication: RHEUMATOID ARTHRITIS
     Route: 058
     Dates: start: 20071101, end: 20071215
  2. ARAVA [Concomitant]
     Route: 048
     Dates: start: 20061001
  3. PLAQUENIL [Concomitant]
     Route: 048
     Dates: start: 20050601
  4. METHOTREXATE [Concomitant]
     Route: 048
     Dates: start: 20050201

REACTIONS (2)
  - NASOPHARYNGITIS [None]
  - SINUSITIS [None]
